FAERS Safety Report 9252109 (Version 1)
Quarter: 2013Q1

REPORT INFORMATION
  Report Type: Spontaneous
  Country: US (occurrence: None)
  Receive Date: 20130305
  Receipt Date: 20130305
  Transmission Date: 20140127
  Serious: Yes (Hospitalization)
  Sender: FDA-Public Use
  Company Number: 163-21880-12090948

PATIENT
  Age: 59 Year
  Sex: Female

DRUGS (12)
  1. REVLIMID [Suspect]
     Dosage: 1 IN 1 D
     Route: 048
     Dates: start: 20101106, end: 20120901
  2. METFORMIN [Suspect]
  3. ALENDRONATE [Suspect]
  4. WARFARIN [Suspect]
  5. SYMBICORT [Suspect]
  6. ACYCLOVIR [Suspect]
  7. GLYBURIDE [Suspect]
  8. VENTOLIN [Suspect]
  9. HYDROCODONE [Suspect]
  10. DIPHENHYDRAMINE [Suspect]
  11. LOPERAMIDE [Suspect]
  12. OXYCODONE / ACETAMINOPHEN [Suspect]

REACTIONS (1)
  - Pneumonia [None]
